FAERS Safety Report 14698656 (Version 2)
Quarter: 2018Q2

REPORT INFORMATION
  Report Type: Spontaneous
  Country: IT (occurrence: IT)
  Receive Date: 20180330
  Receipt Date: 20180609
  Transmission Date: 20180711
  Serious: Yes (Other)
  Sender: FDA-Public Use
  Company Number: IT-AMGEN-ITASP2018033200

PATIENT
  Age: 70 Year
  Sex: Female
  Weight: 85 kg

DRUGS (12)
  1. FEMARA [Concomitant]
     Active Substance: LETROZOLE
     Indication: BREAST CANCER
     Dosage: 1 POSOLOGICAL UNIT, CYCLICAL
     Route: 048
     Dates: start: 20080101, end: 20170930
  2. TREDIMIN [Concomitant]
     Dosage: UNK UNK, QMO (25000 VIAL)
     Route: 048
     Dates: start: 20150216
  3. NICETILE [Concomitant]
     Active Substance: ACETYLCARNITINE HYDROCHLORIDE
     Dosage: 1 DF, QD
     Dates: start: 20150206
  4. SOTALEX [Concomitant]
     Active Substance: SOTALOL
     Dosage: 80 MG, UNK
     Route: 048
  5. PROTELOS [Concomitant]
     Active Substance: STRONTIUM RANELATE
     Indication: OSTEOPOROSIS
  6. PARIET [Concomitant]
     Active Substance: RABEPRAZOLE SODIUM
     Dosage: UNK
     Route: 048
     Dates: start: 20110101, end: 20180328
  7. TAREG [Concomitant]
     Active Substance: VALSARTAN
     Indication: HYPERTENSION
     Dosage: 80 MG, UNK
     Route: 048
  8. DIBASE [Concomitant]
     Active Substance: CHOLECALCIFEROL
     Dosage: UNK
  9. NATECAL [Concomitant]
     Active Substance: CALCIUM CARBONATE\CHOLECALCIFEROL
     Dosage: UNK
  10. PROLIA [Suspect]
     Active Substance: DENOSUMAB
     Indication: OSTEOPOROSIS
     Dosage: 60 MG, Q6MO
     Route: 058
     Dates: start: 20150212
  11. PALEXIA [Concomitant]
     Active Substance: TAPENTADOL HYDROCHLORIDE
     Dosage: 50 MG, BID
     Dates: start: 20150216
  12. CLODY [Concomitant]
     Active Substance: CLODRONATE DISODIUM
     Dosage: 200 MG, UNK
     Dates: start: 20180305

REACTIONS (5)
  - Hyperpyrexia [Recovering/Resolving]
  - Drug ineffective [Unknown]
  - Spinal compression fracture [Recovering/Resolving]
  - Neuralgia [Recovering/Resolving]
  - Breast pain [Unknown]

NARRATIVE: CASE EVENT DATE: 20180218
